FAERS Safety Report 14211680 (Version 1)
Quarter: 2017Q4

REPORT INFORMATION
  Report Type: Report from Study
  Country: CA (occurrence: CA)
  Receive Date: 20171121
  Receipt Date: 20171121
  Transmission Date: 20180321
  Serious: Yes (Death)
  Sender: FDA-Public Use
  Company Number: CA-ACTELION-A-US2017-162569

PATIENT
  Age: 77 Year
  Sex: Female
  Weight: 60.77 kg

DRUGS (5)
  1. OPSUMIT [Suspect]
     Active Substance: MACITENTAN
     Indication: PULMONARY ARTERIAL HYPERTENSION
     Dosage: 10 MG, QD
     Route: 048
     Dates: start: 20171012, end: 20171104
  2. ATIVAN [Concomitant]
     Active Substance: LORAZEPAM
  3. ADCIRCA [Concomitant]
     Active Substance: TADALAFIL
  4. ADALAT [Concomitant]
     Active Substance: NIFEDIPINE
  5. LYRICA [Concomitant]
     Active Substance: PREGABALIN

REACTIONS (2)
  - Raynaud^s phenomenon [Fatal]
  - Scleroderma [Fatal]
